FAERS Safety Report 7802031-8 (Version None)
Quarter: 2011Q4

REPORT INFORMATION
  Report Type: 
  Country: None (occurrence: None)
  Receive Date: 20111007
  Receipt Date: 20111003
  Transmission Date: 20120403
  Serious: Yes (Death, Other)
  Sender: FDA-Public Use
  Company Number: PHHY2011BR50069

PATIENT
  Sex: Female

DRUGS (2)
  1. LOSARTAN POTASSIUM [Suspect]
     Indication: HYPERTENSION
  2. EXFORGE [Suspect]
     Dosage: 160 MG VALS AND 5 MG AMLO

REACTIONS (5)
  - CARTILAGE INJURY [None]
  - HYPERTENSION [None]
  - CEREBRAL ARTERY EMBOLISM [None]
  - OSTEOARTHRITIS [None]
  - HEART RATE DECREASED [None]
